FAERS Safety Report 6834557-8 (Version None)
Quarter: 2010Q3

REPORT INFORMATION
  Report Type: 
  Country: None (occurrence: None)
  Receive Date: 20100712
  Receipt Date: 20070615
  Transmission Date: 20110219
  Serious: No
  Sender: FDA-Public Use
  Company Number: US-PFIZER INC-2007033464

PATIENT
  Sex: Female
  Weight: 80.909 kg

DRUGS (7)
  1. CHANTIX [Suspect]
     Indication: SMOKING CESSATION THERAPY
     Route: 048
     Dates: start: 20070411, end: 20070420
  2. COPAXONE [Concomitant]
  3. CLINDAMYCIN [Concomitant]
  4. ALBUTEROL [Concomitant]
     Route: 055
  5. METFORMIN HCL [Concomitant]
  6. LIPITOR [Concomitant]
  7. TOPROL-XL [Concomitant]

REACTIONS (4)
  - CHEST DISCOMFORT [None]
  - CHEST PAIN [None]
  - DYSPNOEA [None]
  - NASAL CONGESTION [None]
